FAERS Safety Report 4829404-X (Version None)
Quarter: 2005Q4

REPORT INFORMATION
  Report Type: 
  Country: None (occurrence: None)
  Receive Date: 20051028
  Receipt Date: 20050601
  Transmission Date: 20060501
  Serious: No
  Sender: FDA-Public Use
  Company Number: US136718

PATIENT
  Age: 25 Year
  Sex: Female

DRUGS (6)
  1. SENSIPAR [Suspect]
     Indication: HYPERPARATHYROIDISM SECONDARY
     Dosage: 30 MG, 1 IN 1 DAYS, PO
     Route: 048
     Dates: start: 20050501, end: 20050601
  2. EPOGEN (EPOETIN ALFA) (EPOETIN ALFA) [Concomitant]
  3. NEPHRO-VITE [Concomitant]
  4. RANITIDINE HYDROCHLORIDE [Concomitant]
  5. CALCITRIOL [Concomitant]
  6. SEVELAMER HCL [Concomitant]

REACTIONS (1)
  - ALOPECIA [None]
